FAERS Safety Report 17657040 (Version 1)
Quarter: 2020Q2

REPORT INFORMATION
  Report Type: Spontaneous
  Country: US (occurrence: US)
  Receive Date: 20200410
  Receipt Date: 20200410
  Transmission Date: 20200713
  Serious: Yes (Other)
  Sender: FDA-Public Use
  Company Number: US-IMPRIMIS NJOF-2082637

PATIENT
  Sex: Female

DRUGS (1)
  1. PREDNISOLONE-GATIFLOXACIN-BROMFENAC [Suspect]
     Active Substance: BROMFENAC\GATIFLOXACIN\PREDNISOLONE ACETATE
     Route: 047

REACTIONS (3)
  - Cardiac arrest [Recovered/Resolved]
  - Generalised tonic-clonic seizure [Recovered/Resolved]
  - Sepsis [Recovered/Resolved]
